FAERS Safety Report 25988654 (Version 1)
Quarter: 2025Q4

REPORT INFORMATION
  Report Type: Report from Study
  Country: US (occurrence: US)
  Receive Date: 20251103
  Receipt Date: 20251103
  Transmission Date: 20260118
  Serious: Yes (Death, Other)
  Sender: GLAXOSMITHKLINE
  Company Number: US-GSK-US2025140213

PATIENT
  Age: 84 Year
  Sex: Male

DRUGS (1)
  1. FLUTICASONE FUROATE\UMECLIDINIUM BROMIDE\VILANTEROL TRIFENATATE [Suspect]
     Active Substance: FLUTICASONE FUROATE\UMECLIDINIUM BROMIDE\VILANTEROL TRIFENATATE
     Indication: Chronic obstructive pulmonary disease
     Dosage: UNK, TRELEGY ELLIPTA 100/62.5/25MCG INH 30

REACTIONS (4)
  - Death [Fatal]
  - Dementia [Unknown]
  - Fluid intake reduced [Unknown]
  - Decreased appetite [Unknown]

NARRATIVE: CASE EVENT DATE: 20251027
